FAERS Safety Report 8489928-3 (Version None)
Quarter: 2012Q3

REPORT INFORMATION
  Report Type: 
  Country: None (occurrence: None)
  Receive Date: 20120705
  Receipt Date: 20120702
  Transmission Date: 20120928
  Serious: No
  Sender: FDA-Public Use
  Company Number: US-PFIZER INC-2012158604

PATIENT
  Age: 64 Year
  Sex: Female

DRUGS (1)
  1. PREMARIN [Suspect]
     Dosage: 0.625 MG, UNK
     Route: 048

REACTIONS (6)
  - BLOOD PRESSURE INCREASED [None]
  - ATROPHIC VULVOVAGINITIS [None]
  - INCORRECT DOSE ADMINISTERED [None]
  - MOOD SWINGS [None]
  - SKIN ATROPHY [None]
  - EMOTIONAL DISORDER [None]
